FAERS Safety Report 7502496-5 (Version None)
Quarter: 2011Q2

REPORT INFORMATION
  Report Type: 
  Country: None (occurrence: None)
  Receive Date: 20110523
  Receipt Date: 20110523
  Transmission Date: 20111010
  Serious: Yes (Hospitalization)
  Sender: FDA-Public Use
  Company Number: None

PATIENT
  Age: 16 Year
  Sex: Male
  Weight: 75 kg

DRUGS (1)
  1. CLONAZEPAM [Suspect]
     Indication: ANXIETY
     Dosage: 0.25 MG TID 047
     Dates: start: 20110504, end: 20110509

REACTIONS (5)
  - AGITATION [None]
  - HOSTILITY [None]
  - IRRITABILITY [None]
  - AGGRESSION [None]
  - ABNORMAL BEHAVIOUR [None]
